FAERS Safety Report 9125715 (Version 1)
Quarter: 2013Q1

REPORT INFORMATION
  Report Type: Spontaneous
  Country: BR (occurrence: BR)
  Receive Date: 20130228
  Receipt Date: 20130228
  Transmission Date: 20140127
  Serious: Yes (Other)
  Sender: FDA-Public Use
  Company Number: PHHY2013BR017952

PATIENT
  Sex: Female
  Weight: 70 kg

DRUGS (3)
  1. DIOVAN HCT [Suspect]
     Indication: HYPERTENSION
     Dosage: 1 DF (320 MG VALS AND 12.5 MG HYDRO), DAILY
     Route: 048
     Dates: start: 2010, end: 201111
  2. METHYLDOPA [Concomitant]
     Indication: HYPERTENSION
     Dosage: 250 MG, EACH 8 HOURS
  3. LOSARTAN [Concomitant]
     Indication: HYPERTENSION
     Dosage: 1 DF, DAILY
     Dates: start: 201211

REACTIONS (3)
  - Premature separation of placenta [Recovered/Resolved]
  - Haemorrhage [Recovered/Resolved]
  - Exposure during pregnancy [Unknown]
